FAERS Safety Report 9432456 (Version 1)
Quarter: 2013Q3

REPORT INFORMATION
  Report Type: Spontaneous
  Country: US (occurrence: None)
  Receive Date: 20130730
  Receipt Date: 20130730
  Transmission Date: 20140515
  Serious: Yes (Other)
  Sender: FDA-Public Use
  Company Number: None

PATIENT
  Age: 37 Year
  Sex: Female
  Weight: 54.43 kg

DRUGS (1)
  1. RECLAST [Suspect]
     Indication: OSTEOPOROSIS
     Dosage: 5 MG/100 ML YEARLY IV
     Route: 042
     Dates: start: 20130530

REACTIONS (6)
  - Myalgia [None]
  - Vomiting [None]
  - Diarrhoea [None]
  - Loss of consciousness [None]
  - Hand fracture [None]
  - Head injury [None]
